FAERS Safety Report 23223638 (Version 2)
Quarter: 2023Q4

REPORT INFORMATION
  Report Type: Spontaneous
  Country: US (occurrence: US)
  Receive Date: 20231124
  Receipt Date: 20231222
  Transmission Date: 20240109
  Serious: No
  Sender: FDA-Public Use
  Company Number: US-JNJFOC-20231130538

PATIENT

DRUGS (2)
  1. SIMPONI ARIA [Suspect]
     Active Substance: GOLIMUMAB
     Indication: Psoriatic arthropathy
     Route: 041
  2. ENBREL [Concomitant]
     Active Substance: ETANERCEPT
     Indication: Product used for unknown indication

REACTIONS (8)
  - Drug ineffective [Unknown]
  - Plantar fasciitis [Unknown]
  - Frustration tolerance decreased [Unknown]
  - Restlessness [Unknown]
  - Sitting disability [Unknown]
  - Connective tissue disorder [Unknown]
  - Fear [Unknown]
  - Pain in extremity [Unknown]
